FAERS Safety Report 7528207-5 (Version None)
Quarter: 2011Q2

REPORT INFORMATION
  Report Type: 
  Country: None (occurrence: None)
  Receive Date: 20110607
  Receipt Date: 20100721
  Transmission Date: 20111010
  Serious: No
  Sender: FDA-Public Use
  Company Number: US-ASTRAZENECA-2010SE24383

PATIENT
  Age: 81 Year
  Sex: Female
  Weight: 67.1 kg

DRUGS (3)
  1. TYLENOL-500 [Concomitant]
  2. PRILOSEC [Suspect]
     Indication: GASTROOESOPHAGEAL REFLUX DISEASE
     Route: 048
     Dates: start: 20090309, end: 20100505
  3. ANTIHISTAMINE [Concomitant]

REACTIONS (7)
  - DRUG DOSE OMISSION [None]
  - FREQUENT BOWEL MOVEMENTS [None]
  - VULVAL ULCERATION [None]
  - GASTROOESOPHAGEAL REFLUX DISEASE [None]
  - VAGINAL HAEMORRHAGE [None]
  - VULVOVAGINAL PRURITUS [None]
  - VAGINAL DISCHARGE [None]
